FAERS Safety Report 13152090 (Version 1)
Quarter: 2017Q1

REPORT INFORMATION
  Report Type: Spontaneous
  Country: US (occurrence: US)
  Receive Date: 20170125
  Receipt Date: 20170125
  Transmission Date: 20170428
  Serious: Yes (Hospitalization)
  Sender: FDA-Public Use
  Company Number: US-ABBVIE-17K-163-1845463-00

PATIENT
  Age: 18 Year
  Sex: Male

DRUGS (1)
  1. HUMIRA [Suspect]
     Active Substance: ADALIMUMAB
     Indication: HIDRADENITIS
     Route: 058
     Dates: start: 201611, end: 201701

REACTIONS (3)
  - Psychiatric symptom [Unknown]
  - Hallucination, auditory [Unknown]
  - Tachyphrenia [Unknown]

NARRATIVE: CASE EVENT DATE: 201701
